FAERS Safety Report 9421898 (Version 1)
Quarter: 2013Q3

REPORT INFORMATION
  Report Type: Spontaneous
  Country: US (occurrence: US)
  Receive Date: 20130726
  Receipt Date: 20130726
  Transmission Date: 20140515
  Serious: No
  Sender: FDA-Public Use
  Company Number: US-PFIZER INC-2013214946

PATIENT
  Age: 78 Year
  Sex: Female

DRUGS (9)
  1. SUTENT [Suspect]
     Indication: THYROID CANCER
     Dosage: 50 MG, UNK
     Dates: start: 20130715
  2. ATORVASTATIN CALCIUM [Concomitant]
     Dosage: UNK
  3. CO-Q-10 [Concomitant]
     Dosage: UNK
  4. DETROL [Concomitant]
     Dosage: UNK
  5. GABAPENTIN [Concomitant]
     Dosage: UNK
  6. LEVOTHYROXINE SODIUM [Concomitant]
     Dosage: UNK
  7. LIPITOR [Concomitant]
     Dosage: UNK
  8. METOPROLOL SUCCINATE ER [Concomitant]
     Dosage: UNK
  9. OMEPRAZOLE [Concomitant]
     Dosage: UNK

REACTIONS (2)
  - Arthralgia [Unknown]
  - Off label use [Unknown]
